FAERS Safety Report 10391142 (Version 1)
Quarter: 2014Q3

REPORT INFORMATION
  Report Type: Spontaneous
  Country: US (occurrence: US)
  Receive Date: 20140818
  Receipt Date: 20140818
  Transmission Date: 20150326
  Serious: Yes (Hospitalization, Other)
  Sender: FDA-Public Use
  Company Number: US-009507513-1408USA004662

PATIENT
  Weight: 74.38 kg

DRUGS (1)
  1. NUVARING [Suspect]
     Active Substance: ETHINYL ESTRADIOL\ETONOGESTREL
     Indication: CONTRACEPTION
     Dosage: UNK
     Route: 067
     Dates: start: 20130930, end: 201311

REACTIONS (4)
  - Keloid scar [Not Recovered/Not Resolved]
  - Cellulitis [Unknown]
  - Axillary vein thrombosis [Unknown]
  - Surgery [Unknown]

NARRATIVE: CASE EVENT DATE: 20131115
